FAERS Safety Report 20696852 (Version 1)
Quarter: 2022Q2

REPORT INFORMATION
  Report Type: Spontaneous
  Country: US (occurrence: US)
  Receive Date: 20220411
  Receipt Date: 20220411
  Transmission Date: 20220721
  Serious: No
  Sender: FDA-Public Use
  Company Number: US-Adamas_Pharmaceuticals-USA-POI1235202100043

PATIENT
  Age: 67 Year
  Sex: Female

DRUGS (2)
  1. OSMOLEX ER [Suspect]
     Active Substance: AMANTADINE
     Indication: Parkinson^s disease
     Dosage: 322 MG
     Dates: start: 2020
  2. OSMOLEX ER [Suspect]
     Active Substance: AMANTADINE
     Dosage: UNKNOWN
     Dates: start: 2019, end: 2020

REACTIONS (3)
  - Memory impairment [Not Recovered/Not Resolved]
  - Hallucination [Not Recovered/Not Resolved]
  - Unevaluable event [Not Recovered/Not Resolved]

NARRATIVE: CASE EVENT DATE: 20190101
